FAERS Safety Report 4915911-8 (Version None)
Quarter: 2006Q1

REPORT INFORMATION
  Report Type: 
  Country: None (occurrence: None)
  Receive Date: 20060214
  Receipt Date: 20060201
  Transmission Date: 20060701
  Serious: Yes (Hospitalization)
  Sender: FDA-Public Use
  Company Number: 8014802

PATIENT
  Age: 31 Year
  Sex: Male
  Weight: 88.5 kg

DRUGS (1)
  1. KEPPRA [Suspect]
     Indication: PETIT MAL EPILEPSY
     Dosage: 750 MG 2/D PO
     Route: 048
     Dates: start: 20040601

REACTIONS (3)
  - AMNESIA [None]
  - PULMONARY THROMBOSIS [None]
  - THROMBOSIS [None]
